FAERS Safety Report 6341340-9 (Version None)
Quarter: 2009Q3

REPORT INFORMATION
  Report Type: 
  Country: None (occurrence: None)
  Receive Date: 20090904
  Receipt Date: 20090826
  Transmission Date: 20100115
  Serious: Yes (Hospitalization, Other)
  Sender: FDA-Public Use
  Company Number: PHHY2009JP18470

PATIENT
  Sex: Male

DRUGS (12)
  1. COMTAN [Suspect]
     Indication: DRUG EFFECT DECREASED
     Dosage: 300 MG, DAILY
     Route: 048
     Dates: start: 20090109
  2. COMTAN [Suspect]
     Dosage: 200MG, DAILY
     Route: 048
     Dates: start: 20090116
  3. COMTAN [Suspect]
     Dosage: 400 MG, DAILY
     Route: 048
     Dates: start: 20090213, end: 20090317
  4. COMTAN [Suspect]
     Dosage: 200 MG, DAILY
     Route: 048
     Dates: start: 20090417
  5. MADOPAR [Concomitant]
     Dosage: 450MG DAILY
  6. MADOPAR [Concomitant]
     Dosage: 350MG DAILY
  7. MADOPAR [Concomitant]
     Dosage: 400 MG
     Dates: start: 20090405
  8. MADOPAR [Concomitant]
     Dosage: 500MG DAILY
     Dates: start: 20090428
  9. SELEGILINE HCL [Concomitant]
     Indication: PARKINSON'S DISEASE
     Dosage: 300 MG
     Route: 048
     Dates: start: 20090109
  10. SELEGILINE HCL [Concomitant]
     Dosage: 400 MG
     Route: 048
  11. SELEGILINE HCL [Concomitant]
     Dosage: 450 MG
     Route: 048
  12. SELEGILINE HCL [Concomitant]
     Dosage: 500 MG
     Route: 048

REACTIONS (11)
  - ABDOMINAL PAIN [None]
  - APATHY [None]
  - BLOOD CREATININE DECREASED [None]
  - C-REACTIVE PROTEIN INCREASED [None]
  - DECREASED ACTIVITY [None]
  - DELUSION [None]
  - DIARRHOEA [None]
  - HAEMATOCRIT DECREASED [None]
  - HAEMOGLOBIN DECREASED [None]
  - HYPOKALAEMIA [None]
  - RED BLOOD CELL COUNT DECREASED [None]
